FAERS Safety Report 8294919-1 (Version None)
Quarter: 2012Q2

REPORT INFORMATION
  Report Type: 
  Country: None (occurrence: None)
  Receive Date: 20120418
  Receipt Date: 20120410
  Transmission Date: 20120825
  Serious: Yes (Hospitalization, Other)
  Sender: FDA-Public Use
  Company Number: PR-ABBOTT-12P-131-0897856-00

PATIENT
  Sex: Female
  Weight: 89.892 kg

DRUGS (6)
  1. LIBRAX [Concomitant]
     Indication: IRRITABLE BOWEL SYNDROME
     Dosage: 1 CAP TID BEFORE MEALS AS NEEDED
     Route: 048
     Dates: start: 20100101
  2. QUESTRAN [Concomitant]
     Indication: IRRITABLE BOWEL SYNDROME
     Route: 048
     Dates: start: 20110901
  3. HUMIRA [Suspect]
     Indication: RHEUMATOID ARTHRITIS
     Route: 058
     Dates: start: 20080101, end: 20120305
  4. NEXIUM [Concomitant]
     Indication: IRRITABLE BOWEL SYNDROME
     Route: 048
     Dates: start: 20110101
  5. SKELAXIN [Concomitant]
     Indication: FIBROMYALGIA
     Dosage: 1 TABLET AT BEDTIME AS NEEDED
     Route: 048
     Dates: start: 20100101
  6. LYRICA [Concomitant]
     Indication: FIBROMYALGIA
     Route: 048
     Dates: start: 20090101

REACTIONS (8)
  - INFLUENZA [None]
  - INJECTION SITE PRURITUS [None]
  - INJECTION SITE ERYTHEMA [None]
  - HAEMORRHOIDS [None]
  - NASOPHARYNGITIS [None]
  - HYPERSENSITIVITY [None]
  - INFECTION [None]
  - INJECTION SITE SWELLING [None]
